FAERS Safety Report 12714620 (Version 2)
Quarter: 2016Q3

REPORT INFORMATION
  Report Type: Spontaneous
  Country: US (occurrence: US)
  Receive Date: 20160905
  Receipt Date: 20160912
  Transmission Date: 20161109
  Serious: No
  Sender: FDA-Public Use
  Company Number: US-ASTRAZENECA-2016SE91992

PATIENT
  Age: 65 Year
  Sex: Male

DRUGS (3)
  1. MORPHINE [Concomitant]
     Active Substance: MORPHINE
     Indication: BACK PAIN
     Dosage: UNK, 4 /DAY
     Route: 048
  2. PRILOSEC OTC [Suspect]
     Active Substance: OMEPRAZOLE MAGNESIUM
     Route: 048
     Dates: start: 2016
  3. PRILOSEC OTC [Suspect]
     Active Substance: OMEPRAZOLE MAGNESIUM
     Dosage: 1 TABLET, 2 /DAY-BEFORE READ LABEL DIRECTIONS 2/DAY
     Route: 048
     Dates: start: 2016, end: 2016

REACTIONS (3)
  - Blood pressure increased [Not Recovered/Not Resolved]
  - Inappropriate schedule of drug administration [Unknown]
  - Accidental overdose [Unknown]

NARRATIVE: CASE EVENT DATE: 2016
